FAERS Safety Report 24435726 (Version 4)
Quarter: 2025Q1

REPORT INFORMATION
  Report Type: Spontaneous
  Country: US (occurrence: US)
  Receive Date: 20241015
  Receipt Date: 20250327
  Transmission Date: 20250408
  Serious: No
  Sender: JOHNSON AND JOHNSON
  Company Number: US-JNJFOC-20241008068

PATIENT
  Age: 42 Year
  Sex: Male

DRUGS (1)
  1. TREMFYA [Suspect]
     Active Substance: GUSELKUMAB
     Indication: Psoriatic arthropathy
     Route: 065
     Dates: start: 20240925, end: 20240925

REACTIONS (4)
  - Product dose omission issue [Unknown]
  - Drug delivery system malfunction [Unknown]
  - Device failure [Unknown]
  - Product leakage [Unknown]

NARRATIVE: CASE EVENT DATE: 20240925
